FAERS Safety Report 14490990 (Version 9)
Quarter: 2020Q2

REPORT INFORMATION
  Report Type: Spontaneous
  Country: US (occurrence: US)
  Receive Date: 20180206
  Receipt Date: 20200521
  Transmission Date: 20200713
  Serious: Yes (Other)
  Sender: FDA-Public Use
  Company Number: US-PFIZER INC-2018050137

PATIENT
  Age: 73 Year
  Sex: Female
  Weight: 75 kg

DRUGS (11)
  1. OMEGA [Concomitant]
     Dosage: UNK
  2. IBRANCE [Suspect]
     Active Substance: PALBOCICLIB
     Dosage: 125 MG, UNK
  3. IBRANCE [Suspect]
     Active Substance: PALBOCICLIB
     Dosage: 100 MG, UNK
  4. CENTRUM SILVER [Concomitant]
     Active Substance: MINERALS\VITAMINS
     Dosage: UNK
  5. AMLODIPINE BESYLATE. [Concomitant]
     Active Substance: AMLODIPINE BESYLATE
     Dosage: UNK
  6. VITAMIN D [Concomitant]
     Active Substance: VITAMIN D NOS
     Dosage: UNK
  7. LETROZOLE. [Concomitant]
     Active Substance: LETROZOLE
     Dosage: 2.5 MG, DAILY (EVERYDAY)
     Dates: start: 201612
  8. IBRANCE [Suspect]
     Active Substance: PALBOCICLIB
     Dosage: 75 MG, CYCLIC (DAILY FOR 3 WEEKS OFF FOR 1 WEEK)
     Route: 048
     Dates: start: 2017, end: 20180319
  9. PRAVASTATIN. [Concomitant]
     Active Substance: PRAVASTATIN
     Dosage: UNK
  10. IBRANCE [Suspect]
     Active Substance: PALBOCICLIB
     Indication: BREAST CANCER METASTATIC
     Dosage: 75 MG, DAILY
     Route: 048
     Dates: start: 201612
  11. LOSARTAN. [Concomitant]
     Active Substance: LOSARTAN
     Dosage: 50 MG, UNK

REACTIONS (24)
  - Confusional state [Not Recovered/Not Resolved]
  - Nasal congestion [Recovering/Resolving]
  - Weight increased [Unknown]
  - Asthenia [Not Recovered/Not Resolved]
  - Peripheral swelling [Not Recovered/Not Resolved]
  - Insomnia [Unknown]
  - Neoplasm recurrence [Unknown]
  - Abdominal pain upper [Recovering/Resolving]
  - Influenza [Unknown]
  - Muscle spasms [Recovered/Resolved]
  - Muscle tightness [Unknown]
  - Gait disturbance [Not Recovered/Not Resolved]
  - Muscle strain [Not Recovered/Not Resolved]
  - Lower respiratory tract infection [Recovering/Resolving]
  - Diarrhoea [Recovering/Resolving]
  - Nasopharyngitis [Recovering/Resolving]
  - Hypokinesia [Not Recovered/Not Resolved]
  - Alopecia [Recovering/Resolving]
  - Onychoclasis [Not Recovered/Not Resolved]
  - Bone pain [Not Recovered/Not Resolved]
  - Pain in extremity [Unknown]
  - Spinal disorder [Not Recovered/Not Resolved]
  - Pain [Unknown]
  - Blood count abnormal [Unknown]

NARRATIVE: CASE EVENT DATE: 201612
